FAERS Safety Report 17072048 (Version 1)
Quarter: 2019Q4

REPORT INFORMATION
  Report Type: Spontaneous
  Country: US (occurrence: US)
  Receive Date: 20191123
  Receipt Date: 20191123
  Transmission Date: 20200122
  Serious: No
  Sender: FDA-Public Use
  Company Number: None

PATIENT
  Age: 65 Year
  Sex: Female
  Weight: 82.35 kg

DRUGS (17)
  1. MAGNESIUM GLYCINATE [Concomitant]
     Active Substance: MAGNESIUM GLYCINATE
  2. MELATONIN [Concomitant]
     Active Substance: MELATONIN
  3. BIOTIN [Concomitant]
     Active Substance: BIOTIN
  4. FISH OIL [Concomitant]
     Active Substance: FISH OIL
  5. MULTIVITAMIN [Concomitant]
     Active Substance: VITAMINS
  6. MILK THISTLE [Concomitant]
     Active Substance: DIETARY SUPPLEMENT\HERBALS\MILK THISTLE
  7. TUMERIC [Concomitant]
     Active Substance: HERBALS\TURMERIC
  8. VITAMIN D3 [Concomitant]
     Active Substance: CHOLECALCIFEROL
  9. VITAMIN B12 [Concomitant]
     Active Substance: CYANOCOBALAMIN
  10. PRILOSEC [Concomitant]
     Active Substance: OMEPRAZOLE MAGNESIUM
  11. TRIAMTERENE - HCTZ 37.5-25MG [Concomitant]
  12. VITAMIN B COMPLEX [Concomitant]
     Active Substance: CYANOCOBALAMIN\DEXPANTHENOL\NIACINAMIDE\PYRIDOXINE HYDROCHLORIDE\RIBOFLAVIN 5^-PHOSPHATE SODIUM\THIAMINE HYDROCHLORIDE\VITAMIN B COMPLEX
  13. LEVOTHYROXINE SODIUM 125 MCG TAB [Concomitant]
     Active Substance: LEVOTHYROXINE SODIUM
  14. METROPOLOL TARTRATE 25MG [Concomitant]
  15. VITAMIN B COMPLEX [Concomitant]
     Active Substance: CYANOCOBALAMIN\DEXPANTHENOL\NIACINAMIDE\PYRIDOXINE HYDROCHLORIDE\RIBOFLAVIN 5^-PHOSPHATE SODIUM\THIAMINE HYDROCHLORIDE\VITAMIN B COMPLEX
  16. POTASSIUM [Concomitant]
     Active Substance: POTASSIUM
  17. ELIQUIS [Suspect]
     Active Substance: APIXABAN
     Indication: ANTICOAGULANT THERAPY
     Dosage: ?          QUANTITY:1 TABLET(S);?
     Route: 048
     Dates: start: 20190717, end: 20191111

REACTIONS (4)
  - Skin lesion [None]
  - Blister [None]
  - Rash [None]
  - Product formulation issue [None]

NARRATIVE: CASE EVENT DATE: 20191111
